FAERS Safety Report 9834373 (Version 1)
Quarter: 2014Q1

REPORT INFORMATION
  Report Type: Spontaneous
  Country: US (occurrence: US)
  Receive Date: 20140122
  Receipt Date: 20140122
  Transmission Date: 20141002
  Serious: Yes (Hospitalization)
  Sender: FDA-Public Use
  Company Number: US-SA-2014SA007795

PATIENT
  Age: 48 Year
  Sex: Male
  Weight: 90.7 kg

DRUGS (5)
  1. FABRAZYME [Suspect]
     Indication: FABRY^S DISEASE
     Route: 042
  2. NORMAL SALINE [Concomitant]
  3. SODIUM CHLORIDE [Concomitant]
  4. EPIPEN [Concomitant]
  5. WATER FOR INJECTION [Concomitant]

REACTIONS (1)
  - Cerebrovascular accident [Unknown]
